FAERS Safety Report 7554344-5 (Version None)
Quarter: 2011Q2

REPORT INFORMATION
  Report Type: 
  Country: None (occurrence: None)
  Receive Date: 20110617
  Receipt Date: 20110609
  Transmission Date: 20111010
  Serious: Yes (Other)
  Sender: FDA-Public Use
  Company Number: US-US-EMD SERONO, INC.-231194K09USA

PATIENT
  Sex: Female
  Weight: 95 kg

DRUGS (5)
  1. HYDROCHLOROTHIAZIDE [Concomitant]
     Indication: HYPERTENSION
  2. REBIF [Suspect]
     Route: 058
  3. VALIUM [Concomitant]
     Indication: MUSCLE SPASMS
     Dates: end: 20090101
  4. TRAMADOL HCL [Concomitant]
     Indication: BACK PAIN
  5. REBIF [Suspect]
     Indication: MULTIPLE SCLEROSIS
     Route: 058
     Dates: start: 20070501

REACTIONS (13)
  - INTERVERTEBRAL DISC PROTRUSION [None]
  - FAECAL INCONTINENCE [None]
  - CONSTIPATION [None]
  - VIRAL SINUSITIS [None]
  - FATIGUE [None]
  - DRUG INEFFECTIVE [None]
  - MUSCLE INJURY [None]
  - ROAD TRAFFIC ACCIDENT [None]
  - EXOSTOSIS [None]
  - HAEMATOCHEZIA [None]
  - FALL [None]
  - NASOPHARYNGITIS [None]
  - HEADACHE [None]
